FAERS Safety Report 6370189-6 (Version None)
Quarter: 2009Q3

REPORT INFORMATION
  Report Type: 
  Country: None (occurrence: None)
  Receive Date: 20090923
  Receipt Date: 20090911
  Transmission Date: 20100115
  Serious: Yes (Death, Hospitalization)
  Sender: FDA-Public Use
  Company Number: BE-PFIZER INC-2009198317

PATIENT
  Age: 84 Year

DRUGS (11)
  1. SUNITINIB MALATE [Suspect]
     Indication: PANCREATIC NEUROENDOCRINE TUMOUR
     Dosage: 12.5 MG, 3X/DAY
     Route: 048
     Dates: start: 20090326, end: 20090406
  2. NOVONORM [Concomitant]
     Dosage: UNK
     Route: 048
     Dates: start: 20070926
  3. DURAGESIC-100 [Concomitant]
     Dosage: UNK
     Route: 062
     Dates: start: 20081113
  4. PANTOZOL [Concomitant]
     Dosage: UNK
     Route: 048
     Dates: start: 20090218
  5. LITICAN [Concomitant]
     Dosage: UNK
     Route: 048
     Dates: start: 20090309
  6. PILOCARPINE HYDROCHLORIDE [Concomitant]
     Dosage: UNK
     Route: 061
     Dates: start: 20090301
  7. SANDOSTATIN [Concomitant]
     Dosage: UNK
     Route: 030
     Dates: start: 20050301
  8. ARTEOPTIC [Concomitant]
     Dosage: UNK
     Route: 047
     Dates: start: 20090301
  9. DOMPERIDONE [Concomitant]
     Dosage: UNK
     Dates: start: 20090228, end: 20090406
  10. NULYTELY [Concomitant]
     Dosage: UNK
     Dates: start: 20090228
  11. LASIX [Concomitant]
     Dosage: UNK
     Dates: start: 20090301

REACTIONS (3)
  - GENERAL PHYSICAL HEALTH DETERIORATION [None]
  - METABOLIC ENCEPHALOPATHY [None]
  - SUDDEN DEATH [None]
